FAERS Safety Report 20555036 (Version 5)
Quarter: 2022Q2

REPORT INFORMATION
  Report Type: Report from Study
  Country: CN (occurrence: CN)
  Receive Date: 20220304
  Receipt Date: 20220607
  Transmission Date: 20220720
  Serious: Yes (Hospitalization)
  Sender: FDA-Public Use
  Company Number: CN-BoehringerIngelheim-2022-BI-155247

PATIENT
  Age: 62 Year
  Sex: Male
  Weight: 65 kg

DRUGS (10)
  1. TENECTEPLASE [Suspect]
     Active Substance: TENECTEPLASE
     Indication: Ischaemic stroke
     Route: 042
     Dates: start: 20220220, end: 20220220
  2. DYPHYLLINE [Concomitant]
     Active Substance: DYPHYLLINE
     Indication: Asthma
     Route: 042
     Dates: start: 20220221
  3. AMLODIPINE BESYLATE [Concomitant]
     Active Substance: AMLODIPINE BESYLATE
     Indication: Hypertension
     Route: 048
     Dates: start: 20220221
  4. PIPERACILLIN SODIUM\TAZOBACTAM SODIUM [Concomitant]
     Active Substance: PIPERACILLIN SODIUM\TAZOBACTAM SODIUM
     Indication: Infection
     Dosage: NEEDLE
     Route: 042
     Dates: start: 20220221
  5. SODIUM BICARBONATE [Concomitant]
     Active Substance: SODIUM BICARBONATE
     Indication: Gastric disorder
     Route: 048
     Dates: start: 20220221
  6. ISOSORBIDE MONONITRATE [Concomitant]
     Active Substance: ISOSORBIDE MONONITRATE
     Indication: Coronary artery disease
     Route: 048
     Dates: start: 20220221
  7. POTASSIUM CHLORIDE [Concomitant]
     Active Substance: POTASSIUM CHLORIDE
     Indication: Mineral supplementation
     Route: 042
     Dates: start: 20220221
  8. INSULIN NOS [Concomitant]
     Active Substance: INSULIN NOS
     Indication: Drug therapy
     Route: 042
     Dates: start: 20220221
  9. PHOSPHOLIPID [Concomitant]
     Active Substance: PHOSPHOLIPID
     Indication: Liver injury
     Route: 048
     Dates: start: 20220221
  10. HERBALS\DIAMMONIUM GLYCYRRHIZINATE [Concomitant]
     Active Substance: HERBALS\DIAMMONIUM GLYCYRRHIZINATE
     Indication: Hepatitis viral
     Route: 048
     Dates: start: 20220221

REACTIONS (3)
  - Cerebral haemorrhage [Recovered/Resolved]
  - Acute left ventricular failure [Recovered/Resolved]
  - Pneumonia [Recovered/Resolved]

NARRATIVE: CASE EVENT DATE: 20220220
